FAERS Safety Report 15641197 (Version 1)
Quarter: 2018Q4

REPORT INFORMATION
  Report Type: Spontaneous
  Country: US (occurrence: US)
  Receive Date: 20181120
  Receipt Date: 20181120
  Transmission Date: 20190205
  Serious: Yes (Hospitalization)
  Sender: FDA-Public Use
  Company Number: US-CELGENEUS-USA-20181104366

PATIENT
  Age: 72 Year
  Sex: Male
  Weight: 99 kg

DRUGS (2)
  1. THALOMID [Suspect]
     Active Substance: THALIDOMIDE
     Indication: OFF LABEL USE
  2. THALOMID [Suspect]
     Active Substance: THALIDOMIDE
     Indication: IDIOPATHIC PULMONARY FIBROSIS
     Dosage: 50MG AT HOUR OF SLEEP
     Route: 048
     Dates: start: 20170420

REACTIONS (1)
  - Gastric cancer [Unknown]

NARRATIVE: CASE EVENT DATE: 20181109
